FAERS Safety Report 13971258 (Version 5)
Quarter: 2017Q4

REPORT INFORMATION
  Report Type: Report from Study
  Country: NL (occurrence: NL)
  Receive Date: 20170914
  Receipt Date: 20171107
  Transmission Date: 20180321
  Serious: Yes (Life-Threatening, Hospitalization)
  Sender: FDA-Public Use
  Company Number: NL-OTSUKA-2017_019851

PATIENT
  Age: 75 Year
  Sex: Male

DRUGS (4)
  1. IBRUTINIB [Suspect]
     Active Substance: IBRUTINIB
     Dosage: 560 MG,  IN 1 DAY
     Route: 065
     Dates: start: 20170928
  2. DECITABINE. [Suspect]
     Active Substance: DECITABINE
     Indication: MYELODYSPLASTIC SYNDROME
     Dosage: 36 MG, IN 1 DAY
     Route: 042
     Dates: start: 20170807, end: 20170816
  3. DECITABINE. [Suspect]
     Active Substance: DECITABINE
     Dosage: 36 MG,  IN 1 DAY
     Route: 042
     Dates: start: 20170918
  4. IBRUTINIB [Suspect]
     Active Substance: IBRUTINIB
     Indication: MYELODYSPLASTIC SYNDROME
     Dosage: 560 MG, IN 1 DAY
     Route: 048
     Dates: start: 20170804, end: 20170903

REACTIONS (1)
  - Hypopituitarism [Not Recovered/Not Resolved]

NARRATIVE: CASE EVENT DATE: 20170906
